FAERS Safety Report 10175730 (Version 1)
Quarter: 2014Q2

REPORT INFORMATION
  Report Type: Spontaneous
  Country: US (occurrence: US)
  Receive Date: 20140516
  Receipt Date: 20140516
  Transmission Date: 20141212
  Serious: Yes (Hospitalization, Other)
  Sender: FDA-Public Use
  Company Number: US-BRISTOL-MYERS SQUIBB COMPANY-20713061

PATIENT
  Age: 74 Year
  Sex: Male
  Weight: 87.53 kg

DRUGS (3)
  1. COUMADIN [Suspect]
     Dosage: COUMADIN DOSE FROM 5MG TO 6MG TO 7MG TO 7.5MG AND BACK TO 6MG.?RANGE FROM COUMADIN 5MG TO 8MG
  2. TOPROL [Concomitant]
  3. TIKOSYN [Concomitant]
     Dates: start: 2009

REACTIONS (5)
  - Knee arthroplasty [Unknown]
  - Hernia repair [Unknown]
  - Surgery [Unknown]
  - International normalised ratio increased [Unknown]
  - Hypoacusis [Unknown]
